FAERS Safety Report 24327867 (Version 1)
Quarter: 2024Q3

REPORT INFORMATION
  Report Type: Spontaneous
  Country: US (occurrence: None)
  Receive Date: 20240916
  Receipt Date: 20240916
  Transmission Date: 20241016
  Serious: Yes (unspecified)
  Sender: Public
  Company Number: None

PATIENT
  Age: 47 Year
  Sex: Male
  Weight: 74.25 kg

DRUGS (8)
  1. METRONIDAZOLE [Suspect]
     Active Substance: METRONIDAZOLE
     Dosage: 1 TABLET 4 TIMES A DAY ORAL ?
     Route: 048
     Dates: start: 20240903, end: 20240913
  2. DOXYCYCLINE [Suspect]
     Active Substance: DOXYCYCLINE\DOXYCYCLINE HYCLATE
  3. GLUCOSAMINE [Concomitant]
     Active Substance: GLUCOSAMINE
  4. ASTAXANTHIN [Concomitant]
     Active Substance: ASTAXANTHIN
  5. DIETARY SUPPLEMENT\HERBALS\INDIAN FRANKINCENSE [Concomitant]
     Active Substance: DIETARY SUPPLEMENT\HERBALS\INDIAN FRANKINCENSE
  6. AVOCADO OIL [Concomitant]
     Active Substance: AVOCADO OIL
  7. VITAMINS [Concomitant]
     Active Substance: VITAMINS
  8. CETIRIZINE [Concomitant]
     Active Substance: CETIRIZINE HYDROCHLORIDE

REACTIONS (9)
  - Malaise [None]
  - Musculoskeletal stiffness [None]
  - Headache [None]
  - Mental disorder [None]
  - Emotional disorder [None]
  - Brain fog [None]
  - Anxiety [None]
  - Depressed mood [None]
  - Muscle disorder [None]

NARRATIVE: CASE EVENT DATE: 20240910
